FAERS Safety Report 5654740-7 (Version None)
Quarter: 2008Q1

REPORT INFORMATION
  Report Type: 
  Country: None (occurrence: None)
  Receive Date: 20080219
  Receipt Date: 20071019
  Transmission Date: 20080703
  Serious: No
  Sender: FDA-Public Use
  Company Number: WAES 0710USA04020

PATIENT
  Sex: Female

DRUGS (1)
  1. JANUVIA [Suspect]
     Dosage: 50MG/DAILY/PO
     Route: 048
     Dates: end: 20071001

REACTIONS (1)
  - HALLUCINATION [None]
